FAERS Safety Report 11394810 (Version 1)
Quarter: 2015Q3

REPORT INFORMATION
  Report Type: Spontaneous
  Country: US (occurrence: US)
  Receive Date: 20150819
  Receipt Date: 20150819
  Transmission Date: 20151125
  Serious: No
  Sender: FDA-Public Use
  Company Number: US-009507513-1508USA004409

PATIENT
  Age: 34 Year
  Sex: Male

DRUGS (2)
  1. PREGNYL [Suspect]
     Active Substance: CHORIOGONADOTROPIN ALFA
     Indication: SPERM CONCENTRATION DECREASED
     Dosage: 1000 USP, EVERY OTHER DAY
     Route: 030
     Dates: start: 201501
  2. PREGNYL [Suspect]
     Active Substance: CHORIOGONADOTROPIN ALFA
     Indication: BLOOD TESTOSTERONE DECREASED

REACTIONS (3)
  - Infertility male [Unknown]
  - Drug dose omission [Unknown]
  - Fatigue [Unknown]

NARRATIVE: CASE EVENT DATE: 201507
